FAERS Safety Report 4523574-9 (Version None)
Quarter: 2005Q1

REPORT INFORMATION
  Report Type: 
  Country: None (occurrence: None)
  Receive Date: 20041117
  Receipt Date: 20040930
  Transmission Date: 20050727
  Serious: Yes (Hospitalization)
  Sender: FDA-Public Use
  Company Number: US-JNJFOC-20041000343

PATIENT
  Age: 51 Year
  Sex: Male
  Weight: 90.7194 kg

DRUGS (4)
  1. LEVAQUIN [Suspect]
     Indication: PANCREATITIS
     Dosage: 500 MG, INTRVENOUS
     Route: 042
     Dates: start: 20040909, end: 20040914
  2. LEVAQUIN [Suspect]
     Indication: PANCREATITIS
     Dosage: 500 MG, ORAL
     Route: 048
     Dates: start: 20040914
  3. OMPRAZOLE (OMPRAZOLE) [Concomitant]
  4. ROXICET [Concomitant]

REACTIONS (3)
  - BLISTER [None]
  - SWELLING FACE [None]
  - SWOLLEN TONGUE [None]
